FAERS Safety Report 23415313 (Version 1)
Quarter: 2024Q1

REPORT INFORMATION
  Report Type: Spontaneous
  Country: KR (occurrence: KR)
  Receive Date: 20240118
  Receipt Date: 20240118
  Transmission Date: 20240410
  Serious: Yes (Other)
  Sender: FDA-Public Use
  Company Number: KR-ALKEM LABORATORIES LIMITED-KR-ALKEM-2023-16763

PATIENT
  Age: 45 Year
  Sex: Male

DRUGS (1)
  1. SILDENAFIL [Suspect]
     Active Substance: SILDENAFIL
     Indication: Product used for unknown indication
     Dosage: 250 MILLIGRAM (INGESTED FIVE PILLS OF 50-MG TABLETS)
     Route: 048

REACTIONS (4)
  - Rhabdomyolysis [Recovering/Resolving]
  - Overdose [Unknown]
  - Prescription drug used without a prescription [Unknown]
  - Visual impairment [Recovering/Resolving]
